FAERS Safety Report 14774920 (Version 2)
Quarter: 2018Q4

REPORT INFORMATION
  Report Type: Spontaneous
  Country: US (occurrence: US)
  Receive Date: 20180418
  Receipt Date: 20181009
  Transmission Date: 20190204
  Serious: Yes (Hospitalization, Other)
  Sender: FDA-Public Use
  Company Number: US-DRREDDYS-USA/USA/18/0097823

PATIENT
  Age: 61 Year
  Sex: Female

DRUGS (3)
  1. QUETIAPINE FUMARATE TABLETS [Suspect]
     Active Substance: QUETIAPINE FUMARATE
     Indication: SCHIZOAFFECTIVE DISORDER
     Route: 065
  2. DESIPRAMINE [Suspect]
     Active Substance: DESIPRAMINE
     Indication: SCHIZOAFFECTIVE DISORDER
     Route: 065
  3. LITHIUM. [Suspect]
     Active Substance: LITHIUM
     Indication: SCHIZOAFFECTIVE DISORDER
     Route: 065

REACTIONS (4)
  - Acute kidney injury [Recovered/Resolved]
  - Intestinal obstruction [Recovered/Resolved]
  - Urinary retention [Unknown]
  - Ileus [Unknown]
